FAERS Safety Report 16316333 (Version 2)
Quarter: 2019Q2

REPORT INFORMATION
  Report Type: Spontaneous
  Country: US (occurrence: US)
  Receive Date: 20190515
  Receipt Date: 20190517
  Transmission Date: 20190711
  Serious: Yes (Hospitalization, Other)
  Sender: FDA-Public Use
  Company Number: US-GLAXOSMITHKLINE-US2019AMR083017

PATIENT
  Sex: Male

DRUGS (1)
  1. TRELEGY ELLIPTA [Suspect]
     Active Substance: FLUTICASONE FUROATE\UMECLIDINIUM BROMIDE\VILANTEROL TRIFENATATE
     Indication: PRODUCT USED FOR UNKNOWN INDICATION
     Dosage: 100/62.5/25 MCG, UNK
     Route: 055
     Dates: start: 2017

REACTIONS (13)
  - Foot operation [Unknown]
  - Localised infection [Unknown]
  - Wound [Unknown]
  - Product dose omission [Unknown]
  - Central venous catheterisation [Unknown]
  - Chronic obstructive pulmonary disease [Unknown]
  - Staphylococcal infection [Unknown]
  - Limb discomfort [Unknown]
  - Device related infection [Unknown]
  - Ostectomy [Unknown]
  - Gait inability [Not Recovered/Not Resolved]
  - Arthritis bacterial [Unknown]
  - Dyspnoea [Not Recovered/Not Resolved]
